FAERS Safety Report 19357235 (Version 1)
Quarter: 2021Q2

REPORT INFORMATION
  Report Type: Spontaneous
  Country: US (occurrence: US)
  Receive Date: 20210602
  Receipt Date: 20210602
  Transmission Date: 20210717
  Serious: No
  Sender: FDA-Public Use
  Company Number: None

PATIENT
  Age: 47 Year
  Sex: Female
  Weight: 81 kg

DRUGS (1)
  1. EMGALITY [Suspect]
     Active Substance: GALCANEZUMAB-GNLM
     Indication: MIGRAINE WITH AURA
     Dosage: ?          OTHER FREQUENCY:ONCE A MONTH;OTHER ROUTE:PREFILLED SYRINGE?
     Dates: start: 20210429, end: 20210602

REACTIONS (8)
  - Pruritus [None]
  - Nausea [None]
  - Urticaria [None]
  - Dizziness [None]
  - Fatigue [None]
  - Migraine [None]
  - Erythema [None]
  - Tinnitus [None]
